FAERS Safety Report 8592415-5 (Version None)
Quarter: 2012Q3

REPORT INFORMATION
  Report Type: 
  Country: None (occurrence: None)
  Receive Date: 20120814
  Receipt Date: 20100922
  Transmission Date: 20120928
  Serious: Yes (Other)
  Sender: FDA-Public Use
  Company Number: CA-MERCK-2010SP040134

PATIENT

DRUGS (7)
  1. POSACONAZOLE [Suspect]
     Indication: ANTIFUNGAL PROPHYLAXIS
     Dosage: 120.6 MG, BID
     Route: 048
     Dates: start: 20100718, end: 20100721
  2. CARBOPLATIN [Concomitant]
     Indication: CHEMOTHERAPY
     Dosage: UNK
     Dates: start: 20100716, end: 20100720
  3. CARBOPLATIN [Concomitant]
     Indication: STEM CELL TRANSPLANT
  4. ETOPOSIDE [Concomitant]
     Indication: CHEMOTHERAPY
     Dosage: UNK
     Dates: start: 20100716, end: 20100720
  5. MELPHALAN HYDROCHLORIDE [Concomitant]
     Indication: CHEMOTHERAPY
     Dosage: UNK
     Dates: start: 20100716, end: 20100720
  6. MELPHALAN HYDROCHLORIDE [Concomitant]
     Indication: STEM CELL TRANSPLANT
  7. ETOPOSIDE [Concomitant]
     Indication: STEM CELL TRANSPLANT

REACTIONS (1)
  - HEPATIC ENZYME INCREASED [None]
